FAERS Safety Report 21783867 (Version 8)
Quarter: 2024Q1

REPORT INFORMATION
  Report Type: Spontaneous
  Country: US (occurrence: US)
  Receive Date: 20221227
  Receipt Date: 20240119
  Transmission Date: 20240409
  Serious: No
  Sender: FDA-Public Use
  Company Number: US-PFIZER INC-PV202200130385

PATIENT
  Age: 83 Year
  Sex: Female
  Weight: 67.12 kg

DRUGS (1)
  1. BRAFTOVI [Suspect]
     Active Substance: ENCORAFENIB
     Dosage: TAKE 300 MG BY MOUTH ONCE DAILY
     Route: 048
     Dates: start: 20230101

REACTIONS (3)
  - Neoplasm progression [Unknown]
  - Cancer pain [Unknown]
  - Ear disorder [Unknown]
